FAERS Safety Report 11985287 (Version 2)
Quarter: 2016Q1

REPORT INFORMATION
  Report Type: Report from Study
  Country: US (occurrence: US)
  Receive Date: 20160201
  Receipt Date: 20160218
  Transmission Date: 20160526
  Serious: Yes (Death, Hospitalization)
  Sender: FDA-Public Use
  Company Number: US-ARIAD PHARMACEUTICALS, INC-2015US005618

PATIENT
  Sex: Female
  Weight: 58 kg

DRUGS (2)
  1. ICLUSIG [Suspect]
     Active Substance: PONATINIB
     Dosage: 15 MG, BID
     Route: 048
  2. ICLUSIG [Suspect]
     Active Substance: PONATINIB
     Indication: GASTROINTESTINAL STROMAL TUMOUR
     Dosage: 15 MG, QD
     Route: 048
     Dates: start: 20151005

REACTIONS (10)
  - Constipation [Not Recovered/Not Resolved]
  - Death [Fatal]
  - Abdominal pain upper [Not Recovered/Not Resolved]
  - Respiratory disorder [Not Recovered/Not Resolved]
  - Off label use [Not Recovered/Not Resolved]
  - Asthenia [Not Recovered/Not Resolved]
  - Feeling hot [Not Recovered/Not Resolved]
  - Burning sensation [Not Recovered/Not Resolved]
  - Gait disturbance [Not Recovered/Not Resolved]
  - Abdominal discomfort [Not Recovered/Not Resolved]
